FAERS Safety Report 7938754-X (Version None)
Quarter: 2011Q4

REPORT INFORMATION
  Report Type: 
  Country: None (occurrence: None)
  Receive Date: 20111124
  Receipt Date: 20111116
  Transmission Date: 20120403
  Serious: No
  Sender: FDA-Public Use
  Company Number: US-BIOGENIDEC-2011BI041416

PATIENT
  Age: 47 Year
  Sex: Female

DRUGS (2)
  1. TYSABRI [Suspect]
     Indication: MULTIPLE SCLEROSIS
     Route: 042
     Dates: start: 20111019
  2. AVONEX [Concomitant]
     Indication: MULTIPLE SCLEROSIS
     Route: 030
     Dates: start: 20030619

REACTIONS (6)
  - DEVICE FAILURE [None]
  - INFLUENZA LIKE ILLNESS [None]
  - DEPRESSION SUICIDAL [None]
  - SUICIDAL IDEATION [None]
  - FATIGUE [None]
  - INFUSION RELATED REACTION [None]
